FAERS Safety Report 7055354-7 (Version None)
Quarter: 2010Q4

REPORT INFORMATION
  Report Type: 
  Country: None (occurrence: None)
  Receive Date: 20101019
  Receipt Date: 20101019
  Transmission Date: 20110411
  Serious: Yes (Other)
  Sender: FDA-Public Use
  Company Number: None

PATIENT
  Age: 4 Year
  Sex: Male
  Weight: 18.1439 kg

DRUGS (2)
  1. ATROPINE SULFATE [Suspect]
     Indication: AMBLYOPIA
     Dosage: 1 DROP 1X/DAY OPHTHALMIC
     Route: 047
     Dates: start: 20100401, end: 20101001
  2. ATROPINE SULFATE [Suspect]
     Indication: STRABISMUS
     Dosage: 1 DROP 1X/DAY OPHTHALMIC
     Route: 047
     Dates: start: 20100401, end: 20101001

REACTIONS (3)
  - ABNORMAL BEHAVIOUR [None]
  - AGGRESSION [None]
  - IRRITABILITY [None]
